FAERS Safety Report 17024687 (Version 1)
Quarter: 2019Q4

REPORT INFORMATION
  Report Type: Spontaneous
  Country: US (occurrence: US)
  Receive Date: 20191113
  Receipt Date: 20191113
  Transmission Date: 20200122
  Serious: Yes (Other)
  Sender: FDA-Public Use
  Company Number: US-TEVA-2019-US-1134545

PATIENT
  Age: 42 Year
  Sex: Female

DRUGS (1)
  1. CLONAZEPAM TEVA [Suspect]
     Active Substance: CLONAZEPAM
     Indication: SLEEP PARALYSIS
     Dosage: 0.5 MG
     Route: 065
     Dates: start: 1994

REACTIONS (11)
  - Weight decreased [Unknown]
  - Withdrawal syndrome [Unknown]
  - Feeling abnormal [Unknown]
  - Drug ineffective [Unknown]
  - Impaired work ability [Unknown]
  - Nausea [Unknown]
  - Confusional state [Unknown]
  - Suicidal ideation [Unknown]
  - Decreased appetite [Unknown]
  - Product substitution issue [Unknown]
  - Irritability [Unknown]

NARRATIVE: CASE EVENT DATE: 201610
